FAERS Safety Report 15154362 (Version 2)
Quarter: 2018Q3

REPORT INFORMATION
  Report Type: Spontaneous
  Country: JP (occurrence: JP)
  Receive Date: 20180717
  Receipt Date: 20180723
  Transmission Date: 20181010
  Serious: Yes (Hospitalization)
  Sender: FDA-Public Use
  Company Number: JP-JNJFOC-20180704457

PATIENT
  Age: 68 Year
  Sex: Female
  Weight: 48.9 kg

DRUGS (1)
  1. XEPLION [Suspect]
     Active Substance: PALIPERIDONE PALMITATE
     Indication: PRODUCT USED FOR UNKNOWN INDICATION
     Route: 030
     Dates: start: 20180206, end: 20180206

REACTIONS (4)
  - Refusal of treatment by patient [Unknown]
  - Hospitalisation [Unknown]
  - Drug effect incomplete [Unknown]
  - Mood altered [Unknown]

NARRATIVE: CASE EVENT DATE: 20180303
